FAERS Safety Report 24989987 (Version 1)
Quarter: 2025Q1

REPORT INFORMATION
  Report Type: Report from Study
  Country: US (occurrence: US)
  Receive Date: 20250220
  Receipt Date: 20250220
  Transmission Date: 20250408
  Serious: Yes (Hospitalization, Other)
  Sender: ABBVIE
  Company Number: US-ABBVIE-6139783

PATIENT
  Age: 77 Year
  Sex: Female

DRUGS (1)
  1. SKYRIZI [Suspect]
     Active Substance: RISANKIZUMAB-RZAA
     Indication: Product used for unknown indication
     Route: 058
     Dates: start: 20240101

REACTIONS (10)
  - Breast mass [Unknown]
  - Fall [Not Recovered/Not Resolved]
  - Confusional state [Not Recovered/Not Resolved]
  - Ligament sprain [Unknown]
  - Lymphoma [Unknown]
  - Nephropathy [Unknown]
  - Head injury [Not Recovered/Not Resolved]
  - Contusion [Unknown]
  - Blood calcium increased [Unknown]
  - Lung disorder [Unknown]

NARRATIVE: CASE EVENT DATE: 20250129
